FAERS Safety Report 8062417-6 (Version None)
Quarter: 2012Q1

REPORT INFORMATION
  Report Type: 
  Country: None (occurrence: None)
  Receive Date: 20120113
  Receipt Date: 20120106
  Transmission Date: 20120608
  Serious: Yes (Other)
  Sender: FDA-Public Use
  Company Number: AUR-APL-2012-00415

PATIENT
  Age: 74 Year
  Sex: Female
  Weight: 60.32 kg

DRUGS (11)
  1. AMLODIPINE [Suspect]
     Indication: PRODUCT USED FOR UNKNOWN INDICATION
     Dates: start: 20111122
  2. FOLEY [Concomitant]
  3. PROCHLORPERAZINE [Concomitant]
  4. TRIMETHOPRIM [Concomitant]
  5. SUDOCREM [Concomitant]
  6. RAMIPRIL [Concomitant]
  7. BD MICRO-FINE PLUS [Concomitant]
  8. HUMALOG [Concomitant]
  9. SIMPLA [Concomitant]
  10. FOLYSIL X-TRA [Concomitant]
  11. CLOTRIMAZOLE [Concomitant]

REACTIONS (2)
  - VISION BLURRED [None]
  - DIZZINESS [None]
